FAERS Safety Report 4847502-1 (Version None)
Quarter: 2005Q4

REPORT INFORMATION
  Report Type: 
  Country: None (occurrence: None)
  Receive Date: 20051207
  Receipt Date: 20050907
  Transmission Date: 20060501
  Serious: Yes (Other)
  Sender: FDA-Public Use
  Company Number: PHNU2005DE03109

PATIENT
  Age: 76 Year
  Sex: Female
  Weight: 60 kg

DRUGS (4)
  1. EMSELEX EXTENDED RELEASE [Suspect]
     Indication: BLADDER DISORDER
     Dosage: 1 DF, QD
     Route: 048
     Dates: start: 20050831, end: 20050905
  2. CARBIDOPA + LEVODOPA [Concomitant]
     Indication: PARKINSON'S DISEASE
     Dosage: 1 DF, TID
  3. SIFROL [Concomitant]
     Indication: PARKINSON'S DISEASE
     Dosage: 1 DF, TID
  4. SEROQUEL [Concomitant]
     Indication: HALLUCINATION

REACTIONS (4)
  - AGGRESSION [None]
  - CONDITION AGGRAVATED [None]
  - HALLUCINATION [None]
  - MENTAL DISORDER [None]
